FAERS Safety Report 9427043 (Version 1)
Quarter: 2013Q3

REPORT INFORMATION
  Report Type: Report from Study
  Country: US (occurrence: US)
  Receive Date: 20130730
  Receipt Date: 20130730
  Transmission Date: 20140515
  Serious: No
  Sender: FDA-Public Use
  Company Number: US-ABBOTT-12P-163-1003862-00

PATIENT
  Age: 61 Year
  Sex: Female
  Weight: 66.74 kg

DRUGS (5)
  1. NIASPAN (COATED) [Suspect]
     Indication: LOW DENSITY LIPOPROTEIN
     Dosage: 500 MG DAILY
     Route: 048
  2. NIASPAN (COATED) [Suspect]
     Indication: BLOOD TRIGLYCERIDES
  3. CELEBREX [Concomitant]
     Indication: PRODUCT USED FOR UNKNOWN INDICATION
  4. METHOTREXATE [Concomitant]
     Indication: PRODUCT USED FOR UNKNOWN INDICATION
  5. FOLIC ACID [Concomitant]
     Indication: PRODUCT USED FOR UNKNOWN INDICATION

REACTIONS (1)
  - Flushing [Recovered/Resolved]
